FAERS Safety Report 4635362-3 (Version None)
Quarter: 2005Q2

REPORT INFORMATION
  Report Type: 
  Country: None (occurrence: None)
  Receive Date: 20050411
  Receipt Date: 20050330
  Transmission Date: 20051028
  Serious: Yes (Hospitalization, Other)
  Sender: FDA-Public Use
  Company Number: HQWYE652404APR05

PATIENT
  Age: 73 Year
  Sex: Female

DRUGS (1)
  1. PREMIA [Suspect]
     Dosage: ORAL
     Route: 048
     Dates: end: 20041015

REACTIONS (1)
  - VAGINAL HAEMORRHAGE [None]
